FAERS Safety Report 5200011-2 (Version None)
Quarter: 2007Q1

REPORT INFORMATION
  Report Type: 
  Country: None (occurrence: None)
  Receive Date: 20070105
  Receipt Date: 20070103
  Transmission Date: 20070707
  Serious: Yes (Other)
  Sender: FDA-Public Use
  Company Number: 2007UW00174

PATIENT
  Age: 63 Year
  Sex: Female
  Weight: 63.5 kg

DRUGS (6)
  1. TAMOXIFEN CITRATE [Suspect]
     Route: 048
  2. ADVAIR DISKUS 100/50 [Concomitant]
  3. SYNTHROID [Concomitant]
  4. PREVACID [Concomitant]
  5. PROVENTIL [Concomitant]
  6. NASONEX [Concomitant]

REACTIONS (2)
  - VISION BLURRED [None]
  - VISUAL DISTURBANCE [None]
